FAERS Safety Report 7620097-5 (Version None)
Quarter: 2011Q3

REPORT INFORMATION
  Report Type: 
  Country: None (occurrence: None)
  Receive Date: 20110719
  Receipt Date: 20110713
  Transmission Date: 20111222
  Serious: Yes (Hospitalization)
  Sender: FDA-Public Use
  Company Number: US-BRISTOL-MYERS SQUIBB COMPANY-15899677

PATIENT
  Age: 33 Year
  Sex: Female

DRUGS (2)
  1. COUMADIN [Suspect]
     Dosage: INCREASED TO 5MG TWICE DAILY
     Dates: start: 20100723
  2. LOVENOX [Suspect]
     Dosage: LOVENOX INJECTION INCREASED TO 100MG TWICE DAILY
     Dates: start: 20100723

REACTIONS (1)
  - COMPARTMENT SYNDROME [None]
